FAERS Safety Report 6070383-8 (Version None)
Quarter: 2009Q1

REPORT INFORMATION
  Report Type: 
  Country: None (occurrence: None)
  Receive Date: 20090204
  Receipt Date: 20090120
  Transmission Date: 20090719
  Serious: Yes (Other)
  Sender: FDA-Public Use
  Company Number: 2009157529

PATIENT
  Age: 3 Week
  Sex: Female

DRUGS (2)
  1. FRAGMIN [Suspect]
     Indication: HYPERCOAGULATION
     Dosage: 5000, TRANSMAMMARY; 5000, TRANSPLACENTAL
     Dates: start: 20080101
  2. FRAGMIN [Suspect]
     Indication: HYPERCOAGULATION
     Dosage: 5000, TRANSMAMMARY; 5000, TRANSPLACENTAL
     Dates: start: 20081230

REACTIONS (4)
  - CAESAREAN SECTION [None]
  - DRUG EXPOSURE DURING PREGNANCY [None]
  - DRUG EXPOSURE VIA BREAST MILK [None]
  - HYPERBILIRUBINAEMIA NEONATAL [None]
